FAERS Safety Report 25997950 (Version 2)
Quarter: 2025Q4

REPORT INFORMATION
  Report Type: Spontaneous
  Country: JP (occurrence: JP)
  Receive Date: 20251105
  Receipt Date: 20251117
  Transmission Date: 20260118
  Serious: No
  Sender: AMGEN
  Company Number: JP-KYOWAKIRIN-2025KK020802

PATIENT
  Sex: Female

DRUGS (5)
  1. DARBEPOETIN ALFA [Suspect]
     Active Substance: DARBEPOETIN ALFA
     Indication: Nephrogenic anaemia
     Dosage: UNK
     Route: 065
     Dates: end: 2024
  2. ERYTHROPOIETIN [Suspect]
     Active Substance: ERYTHROPOIETIN
     Indication: Nephrogenic anaemia
     Dosage: UNK
     Route: 065
     Dates: end: 2024
  3. DAPRODUSTAT [Suspect]
     Active Substance: DAPRODUSTAT
     Indication: Nephrogenic anaemia
     Dosage: 2 MG
     Route: 048
     Dates: start: 20241220, end: 2025
  4. DAPRODUSTAT [Suspect]
     Active Substance: DAPRODUSTAT
     Dosage: 4 MG
     Route: 048
     Dates: start: 202502, end: 202505
  5. ENARODUSTAT [Concomitant]
     Active Substance: ENARODUSTAT
     Indication: Nephrogenic anaemia
     Dosage: UNK
     Route: 065
     Dates: start: 202505, end: 202506

REACTIONS (3)
  - Drug ineffective [Unknown]
  - Haemoglobin decreased [Unknown]
  - Pruritus [Recovered/Resolved]

NARRATIVE: CASE EVENT DATE: 20250501
